FAERS Safety Report 7269386-7 (Version None)
Quarter: 2011Q1

REPORT INFORMATION
  Report Type: 
  Country: None (occurrence: None)
  Receive Date: 20110202
  Receipt Date: 20110125
  Transmission Date: 20110831
  Serious: Yes (Other)
  Sender: FDA-Public Use
  Company Number: US-BRISTOL-MYERS SQUIBB COMPANY-15510779

PATIENT
  Age: 40 Year
  Sex: Female

DRUGS (2)
  1. IXEMPRA KIT [Suspect]
     Route: 042
  2. XELODA [Suspect]

REACTIONS (2)
  - SPEECH DISORDER [None]
  - CEREBROVASCULAR ACCIDENT [None]
